FAERS Safety Report 19536504 (Version 1)
Quarter: 2021Q3

REPORT INFORMATION
  Report Type: Spontaneous
  Country: US (occurrence: US)
  Receive Date: 20210713
  Receipt Date: 20210713
  Transmission Date: 20211014
  Serious: Yes (Other)
  Sender: FDA-Public Use
  Company Number: None

PATIENT
  Age: 47 Year
  Sex: Female

DRUGS (2)
  1. MEDROXYPROGESTRONE 2.5MG [Suspect]
     Active Substance: MEDROXYPROGESTERONE
     Route: 048
     Dates: start: 20210623, end: 20210710
  2. ESTRADIOL 1MG [Suspect]
     Active Substance: ESTRADIOL
     Route: 048
     Dates: start: 20210623, end: 20210710

REACTIONS (1)
  - Alopecia [None]

NARRATIVE: CASE EVENT DATE: 20210712
